FAERS Safety Report 8579074-2 (Version None)
Quarter: 2012Q3

REPORT INFORMATION
  Report Type: 
  Country: None (occurrence: None)
  Receive Date: 20120808
  Receipt Date: 20120731
  Transmission Date: 20120928
  Serious: Yes (Hospitalization)
  Sender: FDA-Public Use
  Company Number: US-VERTEX PHARMACEUTICALS INC.-AE-2012-011378

PATIENT
  Sex: Male

DRUGS (3)
  1. PEGASYS [Concomitant]
     Indication: HEPATITIS C
     Dates: start: 20120422, end: 20120722
  2. RIBAVIRIN [Concomitant]
     Indication: HEPATITIS C
     Dates: start: 20120422, end: 20120722
  3. INCIVEK [Suspect]
     Indication: HEPATITIS C
     Dates: start: 20120422, end: 20120715

REACTIONS (7)
  - WEIGHT DECREASED [None]
  - OEDEMA PERIPHERAL [None]
  - ANAEMIA [None]
  - ANORECTAL DISCOMFORT [None]
  - SYNCOPE [None]
  - FATIGUE [None]
  - DECREASED APPETITE [None]
